FAERS Safety Report 5419475-4 (Version None)
Quarter: 2007Q3

REPORT INFORMATION
  Report Type: 
  Country: None (occurrence: None)
  Receive Date: 20070817
  Receipt Date: 20070817
  Transmission Date: 20080115
  Serious: Yes (Other)
  Sender: FDA-Public Use
  Company Number: None

PATIENT
  Sex: Male
  Weight: 66.2252 kg

DRUGS (8)
  1. DIVALPROEX SODIUM EXTENDED RELEASE [Suspect]
     Indication: AFFECTIVE DISORDER
     Dosage: 1000MG BID PO, 1250MG BID PO
     Route: 048
     Dates: start: 20030930, end: 20070119
  2. DIVALPROEX SODIUM EXTENDED RELEASE [Suspect]
     Indication: AFFECTIVE DISORDER
     Dosage: 1000MG BID PO, 1250MG BID PO
     Route: 048
     Dates: start: 20070119, end: 20070625
  3. ENALAPRIL MALEATE [Concomitant]
  4. FENOFIBRATE [Concomitant]
  5. LEVOTHYROXINE SODIUM [Concomitant]
  6. ROSIGLITAZONE [Concomitant]
  7. THIOTHIXENE [Concomitant]
  8. ATORVASTATIN CALCIUM [Concomitant]

REACTIONS (3)
  - FAECALOMA [None]
  - ILEUS [None]
  - PANCREATITIS ACUTE [None]
